FAERS Safety Report 6411248-9 (Version None)
Quarter: 2009Q4

REPORT INFORMATION
  Report Type: 
  Country: None (occurrence: None)
  Receive Date: 20091020
  Receipt Date: 20091012
  Transmission Date: 20100525
  Serious: Yes (Death)
  Sender: FDA-Public Use
  Company Number: 2009EU003878

PATIENT
  Age: 57 Year
  Sex: Female

DRUGS (8)
  1. TACROLIMUS SYSTEMIC         FORMULATION [Suspect]
     Indication: RENAL TRANSPLANT
     Dosage: /D
  2. BASILIXIMAB         (BASILIXIMAB) [Suspect]
     Indication: RENAL TRANSPLANT
     Dosage: /D
  3. METHYLPREDNISOLONE [Suspect]
     Indication: RENAL TRANSPLANT
     Dosage: /D
  4. MYCOPHENOLATE MOFETIL [Suspect]
     Indication: RENAL TRANSPLANT
     Dosage: /D
  5. PREDNISONE TAB [Suspect]
     Indication: RENAL TRANSPLANT
     Dosage: /D
  6. CEFOTAXIME SODIUM [Concomitant]
  7. AMPHOTERICIN B [Concomitant]
  8. TRIMETHOPRIM + SULFAMETHOXAZOLE [Concomitant]

REACTIONS (6)
  - ANEURYSM RUPTURED [None]
  - EFFUSION [None]
  - LUNG INFECTION PSEUDOMONAL [None]
  - MULTIPLE-DRUG RESISTANCE [None]
  - SUBARACHNOID HAEMORRHAGE [None]
  - TRANSMISSION OF AN INFECTIOUS AGENT VIA A MEDICINAL PRODUCT [None]
